FAERS Safety Report 22382059 (Version 1)
Quarter: 2023Q2

REPORT INFORMATION
  Report Type: Spontaneous
  Country: CA (occurrence: CA)
  Receive Date: 20230530
  Receipt Date: 20230530
  Transmission Date: 20230722
  Serious: Yes (Other)
  Sender: FDA-Public Use
  Company Number: CA-BAYER-2023A069621

PATIENT
  Sex: Female

DRUGS (4)
  1. KYLEENA [Suspect]
     Active Substance: LEVONORGESTREL
     Dosage: 17.5?G/DAY
     Route: 015
     Dates: start: 20230509, end: 20230516
  2. KEPPRA XR [Concomitant]
     Active Substance: LEVETIRACETAM
  3. LAMICTAL ODT [Concomitant]
     Active Substance: LAMOTRIGINE
  4. CLONAZEPAM [Concomitant]
     Active Substance: CLONAZEPAM

REACTIONS (3)
  - Myoclonic epilepsy [None]
  - Headache [None]
  - Feeling jittery [None]

NARRATIVE: CASE EVENT DATE: 20230514
